FAERS Safety Report 24673508 (Version 2)
Quarter: 2025Q1

REPORT INFORMATION
  Report Type: Spontaneous
  Country: IT (occurrence: IT)
  Receive Date: 20241128
  Receipt Date: 20250124
  Transmission Date: 20250408
  Serious: Yes (Other)
  Sender: ROCHE
  Company Number: None

PATIENT
  Age: 73 Year
  Sex: Female

DRUGS (11)
  1. CAPECITABINE [Suspect]
     Active Substance: CAPECITABINE
     Indication: Adenocarcinoma of colon
     Dosage: 500MG/DAY (1+1 FROM 21-JUN-2024 TO 23-JUN-2024; 2+1 FROM 24-JUN-2024 TO 26-JUN-2024; 2+20 FROM 27-JU
     Route: 048
     Dates: start: 20240621, end: 20240623
  2. CAPECITABINE [Suspect]
     Active Substance: CAPECITABINE
     Dosage: 500MG/DAY (1+1 FROM 21-JUN-2024 TO 23-JUN-2024; 2+1 FROM 24-JUN-2024 TO 26-JUN-2024; 2+20 FROM 27-JU
     Route: 048
     Dates: start: 20240624, end: 20240626
  3. CAPECITABINE [Suspect]
     Active Substance: CAPECITABINE
     Dosage: 500MG/DAY (1+1 FROM 21-JUN-2024 TO 23-JUN-2024; 2+1 FROM 24-JUN-2024 TO 26-JUN-2024; 2+20 FROM 27-JU
     Route: 048
     Dates: start: 20240627, end: 20240629
  4. CAPECITABINE [Suspect]
     Active Substance: CAPECITABINE
     Dosage: 500MG/DAY (1+1 FROM 21-JUN-2024 TO 23-JUN-2024; 2+1 FROM 24-JUN-2024 TO 26-JUN-2024; 2+20 FROM 27-JU
     Route: 048
     Dates: start: 20240630, end: 20240704
  5. BEVACIZUMAB [Suspect]
     Active Substance: BEVACIZUMAB
     Indication: Adenocarcinoma of colon
     Route: 042
     Dates: start: 20240620, end: 20240620
  6. PANTOPRAZOLE SODIUM [Concomitant]
     Active Substance: PANTOPRAZOLE SODIUM
     Route: 048
  7. HYDROCHLOROTHIAZIDE\VALSARTAN [Concomitant]
     Active Substance: HYDROCHLOROTHIAZIDE\VALSARTAN
     Route: 048
  8. DIAMICRON [Concomitant]
     Route: 048
  9. METFORMIN HYDROCHLORIDE [Concomitant]
     Active Substance: METFORMIN HYDROCHLORIDE
     Route: 048
  10. NEBIVOLOL HYDROCHLORIDE [Concomitant]
     Active Substance: NEBIVOLOL HYDROCHLORIDE
     Route: 048
  11. LINAGLIPTIN [Concomitant]
     Active Substance: LINAGLIPTIN
     Route: 048

REACTIONS (5)
  - Azotaemia [Unknown]
  - Hyperglycaemia [Unknown]
  - Blood creatinine increased [Unknown]
  - Dysgeusia [Unknown]
  - Cough [Unknown]

NARRATIVE: CASE EVENT DATE: 20240626
